FAERS Safety Report 5299682-4 (Version None)
Quarter: 2007Q2

REPORT INFORMATION
  Report Type: 
  Country: None (occurrence: None)
  Receive Date: 20070410
  Receipt Date: 20070326
  Transmission Date: 20071010
  Serious: Yes (Other)
  Sender: FDA-Public Use
  Company Number: GXKR2007IT02997

PATIENT
  Age: 80 Year
  Sex: Male

DRUGS (9)
  1. AMITRIPTLINE HCL [Suspect]
     Indication: DEPRESSION
     Dosage: 40 MG
  2. LORAZEPAM [Suspect]
     Dosage: 2 MG
  3. OMEPRAZOLE [Suspect]
     Indication: GASTRIC DISORDER
     Dosage: 20 MG
  4. HALOPERIDOL [Suspect]
     Dosage: 2 MG
  5. ORPHENADRINE CITRATE [Suspect]
     Dosage: 100 MG
  6. TAMSULOSIN HCL [Concomitant]
  7. DUTASTERIDE (DUTASTERIDE) [Concomitant]
  8. INDOBUFEN (INDOBUFEN) [Concomitant]
  9. CHOLINE (CHOLINE) [Concomitant]

REACTIONS (8)
  - AGITATION [None]
  - CONFUSIONAL STATE [None]
  - DELIRIUM [None]
  - DELUSION [None]
  - DRUG INTERACTION [None]
  - HALLUCINATION [None]
  - INSOMNIA [None]
  - SEDATION [None]
